FAERS Safety Report 10400813 (Version 1)
Quarter: 2014Q3

REPORT INFORMATION
  Report Type: Spontaneous
  Country: US (occurrence: US)
  Receive Date: 20140821
  Receipt Date: 20140821
  Transmission Date: 20150326
  Serious: No
  Sender: FDA-Public Use
  Company Number: US-ASTRAZENECA-2014SE18502

PATIENT
  Age: 57 Year
  Sex: Female
  Weight: 117.9 kg

DRUGS (6)
  1. SYMBICORT [Suspect]
     Active Substance: BUDESONIDE\FORMOTEROL FUMARATE DIHYDRATE
     Indication: ASTHMA
     Dosage: 2 PUFFS IN THE MORNING AND 2 PUFFS AT NIGHT
     Route: 055
     Dates: start: 2011
  2. THEO-DUR [Concomitant]
     Active Substance: THEOPHYLLINE
     Indication: ASTHMA
     Route: 048
  3. PRO-AIR ALBUTEROL INHALER [Concomitant]
     Indication: ASTHMA
     Dosage: 2 PUFFS PRN
     Route: 055
  4. DIOVAN [Concomitant]
     Active Substance: VALSARTAN
     Indication: HYPERTENSION
     Route: 048
  5. BUDESONIDE RESPULES [Suspect]
     Active Substance: BUDESONIDE
     Indication: ASTHMA
     Route: 055
     Dates: start: 201310
  6. SINGULAIR [Concomitant]
     Active Substance: MONTELUKAST SODIUM
     Indication: MULTIPLE ALLERGIES
     Route: 048

REACTIONS (6)
  - Chest discomfort [Unknown]
  - Intentional product misuse [Unknown]
  - Asthma [Recovering/Resolving]
  - Drug ineffective [Unknown]
  - Drug intolerance [Unknown]
  - Respiratory distress [Unknown]
